FAERS Safety Report 9500161 (Version 1)
Quarter: 2013Q3

REPORT INFORMATION
  Report Type: Spontaneous
  Country: BE (occurrence: BE)
  Receive Date: 20130905
  Receipt Date: 20130905
  Transmission Date: 20140515
  Serious: Yes (Disabling)
  Sender: FDA-Public Use
  Company Number: PHHY2013BE097043

PATIENT
  Age: 75 Year
  Sex: Male
  Weight: 70 kg

DRUGS (13)
  1. TASIGNA [Suspect]
     Indication: CHRONIC MYELOID LEUKAEMIA
     Dosage: 300 MG, BID
     Route: 048
     Dates: start: 20121108, end: 20130604
  2. ZALDIAR [Concomitant]
     Route: 048
  3. LEVOCETIRIZINE [Concomitant]
     Indication: HYPERSENSITIVITY
     Route: 048
  4. ATACAND [Concomitant]
     Indication: HYPERTENSION
     Dosage: 16 MG
     Route: 048
  5. LASIX [Concomitant]
     Indication: HYPERTENSION
     Dosage: 40 MG
     Route: 048
     Dates: end: 20130404
  6. PROMAGNOR [Concomitant]
     Indication: MUSCLE SPASMS
     Route: 048
  7. TEMESTA [Concomitant]
     Indication: ANXIETY
     Dosage: 2.5 MG
     Dates: start: 20121108
  8. DICLOFENAC [Concomitant]
     Indication: PAIN
     Dosage: 75 MG
     Route: 048
     Dates: end: 20121101
  9. COLCHICINE [Concomitant]
     Indication: HYPERURICAEMIA
     Dosage: 0.5 MG, QD
     Route: 048
     Dates: start: 20130309
  10. ALLOPURINOL [Concomitant]
     Indication: HYPERURICAEMIA
     Dosage: 100 MG, QD
     Route: 048
     Dates: start: 20130309
  11. D-CURE [Concomitant]
     Indication: PROPHYLAXIS
     Route: 048
     Dates: start: 20130309
  12. BETAMINE [Concomitant]
     Route: 048
     Dates: start: 20130615
  13. GLIVEC [Concomitant]
     Dosage: 400 MG, QD
     Route: 048
     Dates: start: 20130611

REACTIONS (4)
  - Pachydermoperiostosis [Recovering/Resolving]
  - Oedema peripheral [Recovering/Resolving]
  - Pain in extremity [Recovering/Resolving]
  - Skin induration [Recovering/Resolving]
